FAERS Safety Report 15785502 (Version 1)
Quarter: 2019Q1

REPORT INFORMATION
  Report Type: Spontaneous
  Country: US (occurrence: US)
  Receive Date: 20190102
  Receipt Date: 20190102
  Transmission Date: 20190417
  Serious: Yes (Hospitalization)
  Sender: FDA-Public Use
  Company Number: None

PATIENT
  Sex: Female

DRUGS (22)
  1. ARMOUR THYROID [Concomitant]
     Active Substance: THYROID, PORCINE
  2. CEPHALEXIN. [Concomitant]
     Active Substance: CEPHALEXIN
  3. LYRICA [Concomitant]
     Active Substance: PREGABALIN
  4. PAROXETINE. [Concomitant]
     Active Substance: PAROXETINE
  5. PROAIR HFA [Concomitant]
     Active Substance: ALBUTEROL SULFATE
  6. COSENTYX [Suspect]
     Active Substance: SECUKINUMAB
     Indication: PSORIASIS
     Dosage: ?          OTHER FREQUENCY:Q4W;?
     Route: 058
     Dates: start: 20180314
  7. ALLOPURINOL. [Concomitant]
     Active Substance: ALLOPURINOL
  8. HYDROCO/APAP [Concomitant]
     Active Substance: ACETAMINOPHEN\HYDROCODONE
  9. FUROSEMIDE/PAROXETINE [Concomitant]
  10. ZOLPIDEM [Concomitant]
     Active Substance: ZOLPIDEM\ZOLPIDEM TARTRATE
  11. NATURE-THROI [Concomitant]
  12. LISINOPRIL. [Concomitant]
     Active Substance: LISINOPRIL
  13. AZITHROMYCIN ANHYDROUS. [Concomitant]
     Active Substance: AZITHROMYCIN ANHYDROUS
  14. METHOTREXATE. [Concomitant]
     Active Substance: METHOTREXATE
  15. NADOLOL. [Concomitant]
     Active Substance: NADOLOL
  16. MORPHINE SULFATE. [Concomitant]
     Active Substance: MORPHINE SULFATE
  17. CLONAZEPAM. [Concomitant]
     Active Substance: CLONAZEPAM
  18. CYCLOBENZAPR [Concomitant]
     Active Substance: CYCLOBENZAPRINE
  19. TRIAMT/HCTZ [Concomitant]
     Active Substance: HYDROCHLOROTHIAZIDE\TRIAMTERENE
  20. OXYCODONE [Concomitant]
     Active Substance: OXYCODONE
  21. PHENAZOPYRID [Concomitant]
  22. PENICILLIN VK [Concomitant]
     Active Substance: PENICILLIN V POTASSIUM

REACTIONS (1)
  - Cholecystectomy [None]
